FAERS Safety Report 5861674-1 (Version None)
Quarter: 2008Q3

REPORT INFORMATION
  Report Type: 
  Country: None (occurrence: None)
  Receive Date: 20080827
  Receipt Date: 20080618
  Transmission Date: 20090109
  Serious: No
  Sender: FDA-Public Use
  Company Number: US-ABBOTT-08P-163-0458042-00

PATIENT
  Sex: Male
  Weight: 79.45 kg

DRUGS (7)
  1. NIASPAN [Suspect]
     Indication: HIGH DENSITY LIPOPROTEIN DECREASED
     Route: 048
     Dates: start: 20080501
  2. LEVOTHYROXINE SODIUM [Concomitant]
     Indication: HYPOTHYROIDISM
     Route: 048
  3. METOPROLOL TARTRATE [Concomitant]
     Indication: CARDIAC DISORDER
     Route: 048
  4. MONTELUKAST SODIUM [Concomitant]
     Indication: ASTHMA
     Route: 048
  5. TRIAMCINOLONE ACETONIDE [Concomitant]
     Indication: ASTHMA
     Route: 055
  6. VITAMIN CAP [Concomitant]
     Indication: ROUTINE HEALTH MAINTENANCE
     Route: 048
  7. PROSTATE SUPPLEMENT [Concomitant]
     Indication: ROUTINE HEALTH MAINTENANCE
     Route: 048

REACTIONS (3)
  - FLUSHING [None]
  - PARAESTHESIA [None]
  - PRURITUS [None]
